FAERS Safety Report 7660637-3 (Version None)
Quarter: 2011Q3

REPORT INFORMATION
  Report Type: 
  Country: None (occurrence: None)
  Receive Date: 20110805
  Receipt Date: 20101120
  Transmission Date: 20111222
  Serious: No
  Sender: FDA-Public Use
  Company Number: US-ABBOTT-10P-163-0686712-00

PATIENT
  Sex: Female

DRUGS (3)
  1. NIASPAN [Suspect]
     Dosage: 500MG AT NIGHT
     Dates: start: 20091101, end: 20100201
  2. NIASPAN [Suspect]
     Dosage: 500MG AT NIGHT
     Dates: start: 20101120
  3. NIASPAN [Suspect]
     Indication: HYPERLIPIDAEMIA
     Dates: start: 20100201, end: 20101120

REACTIONS (2)
  - PLATELET COUNT DECREASED [None]
  - FLUSHING [None]
